FAERS Safety Report 7735496-0 (Version None)
Quarter: 2011Q3

REPORT INFORMATION
  Report Type: 
  Country: None (occurrence: None)
  Receive Date: 20110907
  Receipt Date: 20110829
  Transmission Date: 20111222
  Serious: Yes (Other)
  Sender: FDA-Public Use
  Company Number: US-ASTRAZENECA-2011SE51814

PATIENT
  Sex: Female

DRUGS (7)
  1. NORTRIPTYLINE HCL [Suspect]
     Indication: IRRITABLE BOWEL SYNDROME
     Dosage: TOOK FOR ONE NIGHT
  2. ZINC [Concomitant]
  3. GABAPENTIN [Suspect]
     Indication: RAPID EYE MOVEMENTS SLEEP ABNORMAL
  4. VICODIN [Concomitant]
  5. NEXIUM [Suspect]
     Route: 048
  6. NORTRIPTYLINE HCL [Suspect]
     Indication: SLEEP DISORDER
     Dosage: TOOK FOR ONE NIGHT
  7. FLEXERIL [Concomitant]

REACTIONS (5)
  - DYSPNOEA [None]
  - SLEEP APNOEA SYNDROME [None]
  - FIBROMYALGIA [None]
  - NIGHTMARE [None]
  - PREMATURE AGEING [None]
